FAERS Safety Report 7905789-2 (Version None)
Quarter: 2011Q4

REPORT INFORMATION
  Report Type: 
  Country: None (occurrence: None)
  Receive Date: 20111110
  Receipt Date: 20111028
  Transmission Date: 20120403
  Serious: Yes (Other)
  Sender: FDA-Public Use
  Company Number: GB-AMGEN-GBRSP2011057531

PATIENT
  Age: 50 Year

DRUGS (1)
  1. ENBREL [Suspect]
     Indication: ANKYLOSING SPONDYLITIS
     Dosage: UNK UNK, UNK

REACTIONS (3)
  - MUSCLE RUPTURE [None]
  - NON-HODGKIN'S LYMPHOMA [None]
  - ABDOMINAL PAIN [None]
